FAERS Safety Report 8305964-1 (Version None)
Quarter: 2012Q2

REPORT INFORMATION
  Report Type: 
  Country: None (occurrence: None)
  Receive Date: 20120423
  Receipt Date: 20120416
  Transmission Date: 20120825
  Serious: Yes (Hospitalization)
  Sender: FDA-Public Use
  Company Number: US-AMGEN-STX355822

PATIENT
  Age: 62 Year
  Sex: Male

DRUGS (10)
  1. RENAGEL [Concomitant]
     Dosage: 1600 MG, TID
  2. PARICALCITOL [Concomitant]
     Dosage: UNK UNK, 3 TIMES/WK
  3. ACETAMINOPHEN AND OXYCODONE HCL [Concomitant]
     Dosage: UNK UNK, PRN
  4. MECLIZINE [Concomitant]
     Dosage: 25 MG, TID
  5. OMEPRAZOLE [Concomitant]
     Dosage: 20 MG, BID
  6. INSULIN GLARGINE [Concomitant]
     Dosage: 12 IU, QD
     Route: 058
  7. ACETAMINOPHEN [Concomitant]
     Dosage: 650 MG, PRN
  8. CINACALCET HYDROCHLORIDE [Suspect]
     Indication: HYPERPARATHYROIDISM SECONDARY
     Dosage: UNK
     Route: 048
     Dates: start: 20070105
  9. PHOSLO [Concomitant]
     Dosage: 1334 MG, TID
  10. INSULIN ASPART [Concomitant]
     Dosage: UNK UNK, PRN

REACTIONS (1)
  - GANGRENE [None]
